FAERS Safety Report 12375250 (Version 1)
Quarter: 2016Q2

REPORT INFORMATION
  Report Type: Spontaneous
  Country: AR (occurrence: AR)
  Receive Date: 20160517
  Receipt Date: 20160517
  Transmission Date: 20160815
  Serious: Yes (Disabling, Other)
  Sender: FDA-Public Use
  Company Number: PHHY2016AR049253

PATIENT
  Sex: Female

DRUGS (1)
  1. STARLIX [Suspect]
     Active Substance: NATEGLINIDE
     Indication: TYPE 2 DIABETES MELLITUS
     Dosage: 1 OR LESS (AS REPORTED), QD
     Route: 065

REACTIONS (10)
  - Mobility decreased [Not Recovered/Not Resolved]
  - Spinal cord disorder [Not Recovered/Not Resolved]
  - Cardiovascular disorder [Recovered/Resolved]
  - Dislocation of vertebra [Recovered/Resolved]
  - Bone disorder [Not Recovered/Not Resolved]
  - Fall [Recovered/Resolved]
  - Blood pressure abnormal [Recovered/Resolved]
  - Calcium deficiency [Unknown]
  - Visual impairment [Not Recovered/Not Resolved]
  - Gait disturbance [Unknown]
